FAERS Safety Report 13848938 (Version 1)
Quarter: 2017Q3

REPORT INFORMATION
  Report Type: Spontaneous
  Country: US (occurrence: US)
  Receive Date: 20170809
  Receipt Date: 20170809
  Transmission Date: 20171127
  Serious: Yes (Hospitalization)
  Sender: FDA-Public Use
  Company Number: None

PATIENT
  Age: 59 Year
  Sex: Male
  Weight: 115.77 kg

DRUGS (1)
  1. LITHIUM CARBONATE 300MG WEST-WARD PHARMACEUTICALS [Suspect]
     Active Substance: LITHIUM CARBONATE
     Indication: BIPOLAR DISORDER
     Dosage: 300MG AM PO
     Route: 048
     Dates: start: 20170627, end: 20170701

REACTIONS (3)
  - Sluggishness [None]
  - Fall [None]
  - Hypotension [None]

NARRATIVE: CASE EVENT DATE: 20170701
